FAERS Safety Report 11269331 (Version 3)
Quarter: 2015Q3

REPORT INFORMATION
  Report Type: Spontaneous
  Country: IT (occurrence: IT)
  Receive Date: 20150714
  Receipt Date: 20150804
  Transmission Date: 20151125
  Serious: Yes (Hospitalization, Other)
  Sender: FDA-Public Use
  Company Number: IT-TEVA-576750ACC

PATIENT
  Age: 65 Year
  Sex: Male

DRUGS (4)
  1. DELTACORTENE - 5 MG COMPRESSE [Concomitant]
     Route: 048
  2. NORMIX [Concomitant]
     Active Substance: RIFAXIMIN
  3. DEURSIL [Concomitant]
     Active Substance: URSODIOL
     Route: 048
  4. LORAZEPAM. [Suspect]
     Active Substance: LORAZEPAM
     Dosage: 240 MILLIGRAM DAILY;
     Route: 048
     Dates: start: 20150610, end: 20150610

REACTIONS (5)
  - Drug abuse [Unknown]
  - Poisoning [Unknown]
  - Intentional self-injury [Unknown]
  - Sopor [Unknown]
  - Suicide attempt [Unknown]

NARRATIVE: CASE EVENT DATE: 20150610
